FAERS Safety Report 6194217-6 (Version None)
Quarter: 2009Q2

REPORT INFORMATION
  Report Type: 
  Country: None (occurrence: None)
  Receive Date: 20090515
  Receipt Date: 20090515
  Transmission Date: 20091009
  Serious: Yes (Other)
  Sender: FDA-Public Use
  Company Number: None

PATIENT
  Sex: Female

DRUGS (3)
  1. DORZOLAMIDE [Suspect]
     Indication: GLAUCOMA
     Dosage: 1 DROP BID EYES
     Dates: start: 20080701, end: 20090401
  2. TIMOLOL MALEATE [Suspect]
  3. HYDROCHLOROTHIAZIDE [Suspect]

REACTIONS (3)
  - BACK PAIN [None]
  - EYE DISORDER [None]
  - VISION BLURRED [None]
